FAERS Safety Report 17009952 (Version 1)
Quarter: 2019Q4

REPORT INFORMATION
  Report Type: Spontaneous
  Country: US (occurrence: US)
  Receive Date: 20191108
  Receipt Date: 20191108
  Transmission Date: 20200122
  Serious: No
  Sender: FDA-Public Use
  Company Number: US-PFIZER INC-2019479004

PATIENT
  Age: 51 Year
  Sex: Female
  Weight: 99.34 kg

DRUGS (1)
  1. CELEBREX [Suspect]
     Active Substance: CELECOXIB
     Indication: ARTHRITIS
     Dosage: 100 MG, 1X/DAY
     Route: 048
     Dates: start: 20191029, end: 20191102

REACTIONS (4)
  - Burning sensation [Not Recovered/Not Resolved]
  - Drug hypersensitivity [Not Recovered/Not Resolved]
  - Pruritus allergic [Not Recovered/Not Resolved]
  - Drug eruption [Not Recovered/Not Resolved]

NARRATIVE: CASE EVENT DATE: 20191101
